FAERS Safety Report 4440598-0 (Version None)
Quarter: 2004Q3

REPORT INFORMATION
  Report Type: 
  Country: None (occurrence: None)
  Receive Date: 20040901
  Receipt Date: 20040818
  Transmission Date: 20050211
  Serious: Yes (Other)
  Sender: FDA-Public Use
  Company Number: 200310803BCA

PATIENT
  Sex: Female

DRUGS (27)
  1. GAMIMUNE N 10% [Suspect]
     Dosage: SEE IMAGE
     Route: 042
     Dates: start: 20030911
  2. GAMIMUNE N 10% [Suspect]
     Dosage: SEE IMAGE
     Route: 042
     Dates: start: 20030911
  3. GAMIMUNE N 10% [Suspect]
     Dosage: SEE IMAGE
     Route: 042
     Dates: start: 20030911
  4. GAMIMUNE N 10% [Suspect]
     Dosage: SEE IMAGE
     Route: 042
     Dates: start: 20030911
  5. GAMIMUNE N 10% [Suspect]
     Dosage: SEE IMAGE
     Route: 042
     Dates: start: 20030919
  6. GAMIMUNE N 10% [Suspect]
     Dosage: SEE IMAGE
     Route: 042
     Dates: start: 20031010
  7. GAMIMUNE N 10% [Suspect]
     Dosage: SEE IMAGE
     Route: 042
     Dates: start: 20031030
  8. GAMIMUNE N 10% [Suspect]
     Dosage: SEE IMAGE
     Route: 042
     Dates: start: 20031030
  9. GAMIMUNE N 10% [Suspect]
     Dosage: SEE IMAGE
     Route: 042
     Dates: start: 20031107
  10. GAMIMUNE N 10% [Suspect]
     Dosage: SEE IMAGE
     Route: 042
     Dates: start: 20031120
  11. GAMIMUNE N 10% [Suspect]
     Dosage: SEE IMAGE
     Route: 042
     Dates: start: 20031120
  12. GAMIMUNE N 10% [Suspect]
     Dosage: SEE IMAGE
     Route: 042
     Dates: start: 20031120
  13. GAMIMUNE N 10% [Suspect]
  14. GAMIMUNE N 10% [Suspect]
  15. GAMIMUNE N 10% [Suspect]
  16. GAMIMUNE N 10% [Suspect]
  17. GAMIMUNE N 10% [Suspect]
  18. GAMIMUNE N 10% [Suspect]
  19. GAMIMUNE N 10% [Suspect]
  20. GAMIMUNE N 10% [Suspect]
  21. GAMIMUNE N 10% [Suspect]
  22. GAMIMUNE N 10% [Suspect]
  23. GAMIMUNE N 10% [Suspect]
  24. GAMIMUNE N 10% [Suspect]
  25. GAMIMUNE N 10% [Suspect]
  26. GAMIMUNE N 10% [Suspect]
  27. GAMIMUNE N 10% [Suspect]

REACTIONS (1)
  - HTLV-1 ANTIBODY POSITIVE [None]
